FAERS Safety Report 9102609 (Version 11)
Quarter: 2015Q2

REPORT INFORMATION
  Report Type: Spontaneous
  Country: US (occurrence: US)
  Receive Date: 20130219
  Receipt Date: 20150521
  Transmission Date: 20150821
  Serious: Yes (Hospitalization, Other)
  Sender: FDA-Public Use
  Company Number: US-009507513-1302USA007793

PATIENT
  Sex: Female

DRUGS (2)
  1. ALENDRONATE SODIUM. [Suspect]
     Active Substance: ALENDRONATE SODIUM
     Indication: OSTEOPOROSIS
     Dosage: 70 MG, UNK
     Dates: start: 20020302, end: 20091208
  2. FOSAMAX [Suspect]
     Active Substance: ALENDRONATE SODIUM
     Indication: OSTEOPOROSIS
     Dosage: 70 MG, QW
     Route: 048
     Dates: start: 20020302, end: 20091208

REACTIONS (39)
  - Hyperkeratosis [Not Recovered/Not Resolved]
  - Acute sinusitis [Unknown]
  - Cough [Unknown]
  - Insomnia [Not Recovered/Not Resolved]
  - Gallbladder necrosis [Unknown]
  - Cholecystitis acute [Unknown]
  - Sinus bradycardia [Unknown]
  - Osteopenia [Unknown]
  - Bone disorder [Unknown]
  - Vitamin D decreased [Unknown]
  - Intramedullary rod insertion [Unknown]
  - Hypercholesterolaemia [Unknown]
  - Spinal osteoarthritis [Unknown]
  - Post procedural hypothyroidism [Unknown]
  - Oesophageal stenosis [Unknown]
  - Femur fracture [Recovered/Resolved]
  - Basal cell carcinoma [Unknown]
  - Rotator cuff syndrome [Unknown]
  - Lymphadenopathy [Unknown]
  - Autoimmune thyroiditis [Unknown]
  - Laboratory test abnormal [Unknown]
  - Pneumonia [Unknown]
  - Hypersensitivity [Unknown]
  - Foot deformity [Unknown]
  - Fibrocystic breast disease [Unknown]
  - Gastrointestinal disorder [Unknown]
  - Abdominal discomfort [Unknown]
  - Osteoarthritis [Unknown]
  - Back disorder [Unknown]
  - Spinal osteoarthritis [Unknown]
  - Vaccination complication [Unknown]
  - Dysphagia [Recovered/Resolved]
  - Cholecystectomy [Unknown]
  - Patellofemoral pain syndrome [Unknown]
  - Gravitational oedema [Unknown]
  - Hepatic cyst [Unknown]
  - Chronic obstructive pulmonary disease [Not Recovered/Not Resolved]
  - Allergy to vaccine [Unknown]
  - Muscular weakness [Unknown]

NARRATIVE: CASE EVENT DATE: 20060307
